FAERS Safety Report 7545925-3 (Version None)
Quarter: 2011Q2

REPORT INFORMATION
  Report Type: 
  Country: None (occurrence: None)
  Receive Date: 20110609
  Receipt Date: 20110609
  Transmission Date: 20111010
  Serious: Yes (Hospitalization)
  Sender: FDA-Public Use
  Company Number: None

PATIENT
  Age: 27 Year
  Sex: Male

DRUGS (2)
  1. PDI ALCOHOL PREP PADS STERILE ALCOHOL PREP PADS PDI [Suspect]
     Indication: INFECTION PROPHYLAXIS
     Dates: start: 20110201, end: 20110606
  2. PDI ALCOHOL PREP PADS STERILE ALCOHOL PREP PADS PDI [Suspect]

REACTIONS (4)
  - BACTERAEMIA [None]
  - HAEMARTHROSIS [None]
  - ARTHRALGIA [None]
  - BACILLUS INFECTION [None]
